FAERS Safety Report 4514131-9 (Version None)
Quarter: 2004Q4

REPORT INFORMATION
  Report Type: 
  Country: None (occurrence: None)
  Receive Date: 20041124
  Receipt Date: 20041111
  Transmission Date: 20050328
  Serious: Yes (Life-Threatening)
  Sender: FDA-Public Use
  Company Number: 2004S1000252

PATIENT
  Age: 48 Year
  Sex: Female
  Weight: 65.0005 kg

DRUGS (3)
  1. ACITRETIN (ACITRETIN) [Suspect]
     Indication: PSORIASIS
     Dosage: QD; PO
     Route: 048
     Dates: start: 20040226
  2. ATORVASTATIN [Concomitant]
  3. AMITRIPTYLINE HCL [Concomitant]

REACTIONS (1)
  - BREAST CANCER FEMALE [None]
